FAERS Safety Report 14675668 (Version 2)
Quarter: 2018Q3

REPORT INFORMATION
  Report Type: Spontaneous
  Country: US (occurrence: US)
  Receive Date: 20180323
  Receipt Date: 20180928
  Transmission Date: 20181010
  Serious: Yes (Other)
  Sender: FDA-Public Use
  Company Number: US-ASTRAZENECA-2018SE35826

PATIENT
  Age: 32117 Day
  Sex: Female
  Weight: 77.6 kg

DRUGS (100)
  1. CEPHALEXIN. [Concomitant]
     Active Substance: CEPHALEXIN
     Indication: INFECTION
     Dates: start: 2004
  2. VITAMIN D [Concomitant]
     Active Substance: CHOLECALCIFEROL
     Dates: start: 2012
  3. TOBRADEX [Concomitant]
     Active Substance: DEXAMETHASONE\TOBRAMYCIN
  4. ZYMAR [Concomitant]
     Active Substance: GATIFLOXACIN
  5. VOLTAREN [Concomitant]
     Active Substance: DICLOFENAC SODIUM
  6. FERREX [Concomitant]
     Active Substance: FERRIC POLYSACCHARIDE COMPLEX
  7. PARICALCITOL. [Concomitant]
     Active Substance: PARICALCITOL
  8. RIVASTIGMINE. [Concomitant]
     Active Substance: RIVASTIGMINE
  9. SULFAMETHOXAZOLE [Concomitant]
     Active Substance: SULFAMETHOXAZOLE
     Dosage: GENERIC: ESOMEPRAZOLE
     Route: 065
     Dates: start: 20151125, end: 2016
  10. COLACE [Concomitant]
     Active Substance: DOCUSATE SODIUM
     Route: 048
     Dates: start: 20151007
  11. LACTULOSE. [Concomitant]
     Active Substance: LACTULOSE
     Dosage: GENERIC: ESOMEPRAZOLE
     Route: 065
     Dates: start: 20160106, end: 2016
  12. NEXIUM [Suspect]
     Active Substance: ESOMEPRAZOLE MAGNESIUM
     Indication: GASTROOESOPHAGEAL REFLUX DISEASE
     Dosage: 40.0MG UNKNOWN
     Route: 048
     Dates: start: 20100304
  13. NEXIUM [Suspect]
     Active Substance: ESOMEPRAZOLE MAGNESIUM
     Indication: GASTROOESOPHAGEAL REFLUX DISEASE
     Dosage: GENERIC: ESOMEPRAZOLE UNKNOWN
     Route: 065
     Dates: start: 20160106, end: 2016
  14. TIAZAC [Concomitant]
     Active Substance: DILTIAZEM HYDROCHLORIDE
     Indication: CARDIAC FAILURE CONGESTIVE
     Dates: start: 2002, end: 2006
  15. AMARYL [Concomitant]
     Active Substance: GLIMEPIRIDE
     Indication: DIABETES MELLITUS
     Dates: start: 2002, end: 2005
  16. ALLOPURINOL. [Concomitant]
     Active Substance: ALLOPURINOL
     Indication: GOUT
     Dates: start: 2006
  17. ALBUTEROL. [Concomitant]
     Active Substance: ALBUTEROL
     Indication: COUGH
     Dates: start: 2006
  18. ASPIRIN. [Concomitant]
     Active Substance: ASPIRIN
     Dates: start: 2016
  19. SYNTHROID [Concomitant]
     Active Substance: LEVOTHYROXINE SODIUM
  20. HYZAAR [Concomitant]
     Active Substance: HYDROCHLOROTHIAZIDE\LOSARTAN POTASSIUM
  21. JANUVIA [Concomitant]
     Active Substance: SITAGLIPTIN PHOSPHATE
  22. RIVASTIGMINE. [Concomitant]
     Active Substance: RIVASTIGMINE
     Route: 048
     Dates: start: 2009
  23. RIVASTIGMINE. [Concomitant]
     Active Substance: RIVASTIGMINE
     Route: 048
     Dates: start: 20151007
  24. NATEGLINIDE. [Concomitant]
     Active Substance: NATEGLINIDE
     Route: 048
     Dates: start: 20151007
  25. CRESTOR [Concomitant]
     Active Substance: ROSUVASTATIN CALCIUM
     Route: 048
     Dates: start: 20151007
  26. COLACE [Concomitant]
     Active Substance: DOCUSATE SODIUM
     Dosage: GENERIC: ESOMEPRAZOLE
     Route: 065
     Dates: start: 20160106, end: 2016
  27. KEFLEX [Concomitant]
     Active Substance: CEPHALEXIN
  28. KEFLEX [Concomitant]
     Active Substance: CEPHALEXIN
     Route: 048
     Dates: start: 20151007
  29. NEXIUM [Suspect]
     Active Substance: ESOMEPRAZOLE MAGNESIUM
     Indication: GASTROOESOPHAGEAL REFLUX DISEASE
     Route: 048
     Dates: start: 2009, end: 2016
  30. PENTOXIFYLLINE. [Concomitant]
     Active Substance: PENTOXIFYLLINE
  31. COZAAR [Concomitant]
     Active Substance: LOSARTAN POTASSIUM
  32. GLIMEPIRIDE. [Concomitant]
     Active Substance: GLIMEPIRIDE
  33. POLYETHYLENE GLYCOL [Concomitant]
     Active Substance: POLYETHYLENE GLYCOLS
  34. SPIRONOLACTONE. [Concomitant]
     Active Substance: SPIRONOLACTONE
     Dosage: GENERIC: ESOMEPRAZOLE
     Route: 065
     Dates: start: 20151125, end: 2016
  35. SPIRONOLACTONE. [Concomitant]
     Active Substance: SPIRONOLACTONE
     Dosage: GENERIC: ESOMEPRAZOLE
     Route: 065
     Dates: start: 20160106, end: 2016
  36. RIVASTIGMINE. [Concomitant]
     Active Substance: RIVASTIGMINE
     Dosage: GENERIC: ESOMEPRAZOLE
     Route: 065
     Dates: start: 20160106, end: 2016
  37. CRESTOR [Concomitant]
     Active Substance: ROSUVASTATIN CALCIUM
     Dosage: GENERIC: ESOMEPRAZOLE
     Route: 065
     Dates: start: 20151125, end: 2016
  38. KEFLEX [Concomitant]
     Active Substance: CEPHALEXIN
     Dosage: GENERIC: ESOMEPRAZOLE
     Route: 065
     Dates: start: 20151125, end: 2016
  39. RENVELA [Concomitant]
     Active Substance: SEVELAMER CARBONATE
     Route: 048
     Dates: start: 2009
  40. LACTULOSE. [Concomitant]
     Active Substance: LACTULOSE
  41. LACTULOSE. [Concomitant]
     Active Substance: LACTULOSE
     Route: 048
     Dates: start: 2009
  42. NEXIUM [Suspect]
     Active Substance: ESOMEPRAZOLE MAGNESIUM
     Indication: GASTROOESOPHAGEAL REFLUX DISEASE
     Dosage: GENERIC: ESOMEPRAZOLE UNKNOWN
     Route: 065
     Dates: start: 2015, end: 2016
  43. ZESTERIL [Concomitant]
     Indication: HYPERTENSION
     Dates: start: 2002, end: 2005
  44. ATORVASTATIN [Concomitant]
     Active Substance: ATORVASTATIN
     Indication: BLOOD CHOLESTEROL INCREASED
     Dates: start: 2002
  45. FOLIC ACID. [Concomitant]
     Active Substance: FOLIC ACID
  46. TOPROL XL [Concomitant]
     Active Substance: METOPROLOL SUCCINATE
  47. BETOPTIC [Concomitant]
     Active Substance: BETAXOLOL HYDROCHLORIDE
  48. ACETAMINOPHEN. [Concomitant]
     Active Substance: ACETAMINOPHEN
  49. LEVEMIR [Concomitant]
     Active Substance: INSULIN DETEMIR
  50. ZEMPLAR [Concomitant]
     Active Substance: PARICALCITOL
  51. RIVASTIGMINE. [Concomitant]
     Active Substance: RIVASTIGMINE
     Dosage: GENERIC: ESOMEPRAZOLE
     Route: 065
     Dates: start: 20151125, end: 2016
  52. NATEGLINIDE. [Concomitant]
     Active Substance: NATEGLINIDE
     Route: 048
     Dates: start: 2009
  53. CRESTOR [Concomitant]
     Active Substance: ROSUVASTATIN CALCIUM
     Route: 048
     Dates: start: 2009
  54. CRESTOR [Concomitant]
     Active Substance: ROSUVASTATIN CALCIUM
     Dosage: GENERIC: ESOMEPRAZOLE
     Route: 065
     Dates: start: 20160106, end: 2016
  55. KEFLEX [Concomitant]
     Active Substance: CEPHALEXIN
     Route: 048
     Dates: start: 2009
  56. EMLA [Concomitant]
     Active Substance: LIDOCAINE\PRILOCAINE
     Dosage: GENERIC: ESOMEPRAZOLE
     Route: 065
     Dates: start: 20151125, end: 2016
  57. ACTOS [Concomitant]
     Active Substance: PIOGLITAZONE HYDROCHLORIDE
     Indication: DIABETES MELLITUS
     Dates: start: 2002, end: 2010
  58. PROMETHAZINE [Concomitant]
     Active Substance: PROMETHAZINE\PROMETHAZINE HYDROCHLORIDE
     Indication: HYPERSENSITIVITY
     Dates: start: 2002, end: 2005
  59. MIRALAX [Concomitant]
     Active Substance: POLYETHYLENE GLYCOL 3350
     Dates: start: 2016
  60. HYDROCO [Concomitant]
  61. SPIRONOLACTONE. [Concomitant]
     Active Substance: SPIRONOLACTONE
     Route: 048
     Dates: start: 2009
  62. SULFAMETHOXAZOLE [Concomitant]
     Active Substance: SULFAMETHOXAZOLE
  63. NATEGLINIDE. [Concomitant]
     Active Substance: NATEGLINIDE
     Dosage: GENERIC: ESOMEPRAZOLE
     Route: 065
     Dates: start: 20151125, end: 2016
  64. NATEGLINIDE. [Concomitant]
     Active Substance: NATEGLINIDE
     Dosage: GENERIC: ESOMEPRAZOLE
     Route: 065
     Dates: start: 20160106, end: 2016
  65. COLACE [Concomitant]
     Active Substance: DOCUSATE SODIUM
  66. RENVELA [Concomitant]
     Active Substance: SEVELAMER CARBONATE
     Dosage: GENERIC: ESOMEPRAZOLE
     Route: 065
     Dates: start: 20151125, end: 2016
  67. EMLA [Concomitant]
     Active Substance: LIDOCAINE\PRILOCAINE
     Route: 048
     Dates: start: 2009
  68. EMLA [Concomitant]
     Active Substance: LIDOCAINE\PRILOCAINE
     Route: 048
     Dates: start: 20151007
  69. PRILOSEC [Suspect]
     Active Substance: OMEPRAZOLE MAGNESIUM
     Indication: GASTROOESOPHAGEAL REFLUX DISEASE
     Route: 048
  70. TOPROL XL [Concomitant]
     Active Substance: METOPROLOL SUCCINATE
     Indication: HYPERTENSION
     Dates: start: 2002, end: 2010
  71. PERCOCET [Concomitant]
     Active Substance: ACETAMINOPHEN\OXYCODONE HYDROCHLORIDE
  72. POTASSIUM CHLORIDE. [Concomitant]
     Active Substance: POTASSIUM CHLORIDE
  73. IPRATROPIUM BROMIDE. [Concomitant]
     Active Substance: IPRATROPIUM BROMIDE
  74. AVELOX [Concomitant]
     Active Substance: MOXIFLOXACIN HYDROCHLORIDE
  75. KLOR?CON [Concomitant]
     Active Substance: POTASSIUM CHLORIDE
  76. SULFAMETHOXAZOLE [Concomitant]
     Active Substance: SULFAMETHOXAZOLE
     Dosage: GENERIC: ESOMEPRAZOLE
     Route: 065
     Dates: start: 20160106, end: 2016
  77. COLACE [Concomitant]
     Active Substance: DOCUSATE SODIUM
     Dosage: GENERIC: ESOMEPRAZOLE
     Route: 065
     Dates: start: 20151125, end: 2016
  78. RENVELA [Concomitant]
     Active Substance: SEVELAMER CARBONATE
  79. NEXIUM [Suspect]
     Active Substance: ESOMEPRAZOLE MAGNESIUM
     Indication: GASTROOESOPHAGEAL REFLUX DISEASE
     Route: 048
     Dates: start: 2009
  80. ZETIA [Concomitant]
     Active Substance: EZETIMIBE
     Dates: start: 2008
  81. PLAVIX [Concomitant]
     Active Substance: CLOPIDOGREL BISULFATE
  82. LIPITOR [Concomitant]
     Active Substance: ATORVASTATIN CALCIUM
  83. CARVEDILOL. [Concomitant]
     Active Substance: CARVEDILOL
  84. SULFAMETHOXAZOLE [Concomitant]
     Active Substance: SULFAMETHOXAZOLE
     Route: 048
     Dates: start: 2009
  85. SULFAMETHOXAZOLE [Concomitant]
     Active Substance: SULFAMETHOXAZOLE
     Route: 048
     Dates: start: 20151007
  86. NATEGLINIDE. [Concomitant]
     Active Substance: NATEGLINIDE
  87. RENVELA [Concomitant]
     Active Substance: SEVELAMER CARBONATE
     Route: 048
     Dates: start: 20151007
  88. LACTULOSE. [Concomitant]
     Active Substance: LACTULOSE
     Route: 048
     Dates: start: 20151007
  89. FUROSEMIDE. [Concomitant]
     Active Substance: FUROSEMIDE
     Indication: FLUID RETENTION
     Dates: start: 2002
  90. CILOXAN [Concomitant]
     Active Substance: CIPROFLOXACIN HYDROCHLORIDE
  91. FOSAMAX [Concomitant]
     Active Substance: ALENDRONATE SODIUM
  92. SPIRONOLACTONE. [Concomitant]
     Active Substance: SPIRONOLACTONE
  93. SPIRONOLACTONE. [Concomitant]
     Active Substance: SPIRONOLACTONE
     Route: 048
     Dates: start: 20151007
  94. CRESTOR [Concomitant]
     Active Substance: ROSUVASTATIN CALCIUM
  95. COLACE [Concomitant]
     Active Substance: DOCUSATE SODIUM
     Route: 048
     Dates: start: 2009
  96. KEFLEX [Concomitant]
     Active Substance: CEPHALEXIN
     Dosage: GENERIC: ESOMEPRAZOLE
     Route: 065
     Dates: start: 20160106, end: 2016
  97. RENVELA [Concomitant]
     Active Substance: SEVELAMER CARBONATE
     Dosage: GENERIC: ESOMEPRAZOLE
     Route: 065
     Dates: start: 20160106, end: 2016
  98. LACTULOSE. [Concomitant]
     Active Substance: LACTULOSE
     Dosage: GENERIC: ESOMEPRAZOLE
     Route: 065
     Dates: start: 20151125, end: 2016
  99. EMLA [Concomitant]
     Active Substance: LIDOCAINE\PRILOCAINE
  100. EMLA [Concomitant]
     Active Substance: LIDOCAINE\PRILOCAINE
     Dosage: GENERIC: ESOMEPRAZOLE
     Route: 065
     Dates: start: 20160106, end: 2016

REACTIONS (6)
  - Hyperparathyroidism secondary [Unknown]
  - Renal failure [Not Recovered/Not Resolved]
  - Nephrogenic anaemia [Unknown]
  - Chronic kidney disease [Not Recovered/Not Resolved]
  - Acute kidney injury [Unknown]
  - End stage renal disease [Not Recovered/Not Resolved]

NARRATIVE: CASE EVENT DATE: 20151217
